FAERS Safety Report 4863249-X (Version None)
Quarter: 2005Q4

REPORT INFORMATION
  Report Type: 
  Country: None (occurrence: None)
  Receive Date: 20051216
  Receipt Date: 20040319
  Transmission Date: 20060501
  Serious: Yes (Other)
  Sender: FDA-Public Use
  Company Number: 23208

PATIENT

DRUGS (2)
  1. KETOROLAC TROMETHAMINE [Suspect]
  2. DIHYDROEGOTAMINE MESYLATE INJ. (DHE) 1MG/ML [Suspect]

REACTIONS (1)
  - MEDICATION ERROR [None]
